FAERS Safety Report 8029395-7 (Version None)
Quarter: 2012Q1

REPORT INFORMATION
  Report Type: 
  Country: None (occurrence: None)
  Receive Date: 20120106
  Receipt Date: 20111227
  Transmission Date: 20120608
  Serious: Yes (Other)
  Sender: FDA-Public Use
  Company Number: US-ROCHE-573070

PATIENT
  Age: 76 Year
  Sex: Female
  Weight: 45.4 kg

DRUGS (2)
  1. BONIVA [Suspect]
     Indication: OSTEOPENIA
     Route: 048
     Dates: start: 20051012, end: 20080601
  2. BENICAR [Concomitant]

REACTIONS (18)
  - PAIN [None]
  - TOOTH DISORDER [None]
  - DRUG HYPERSENSITIVITY [None]
  - DYSPHAGIA [None]
  - EYELID OPERATION [None]
  - GINGIVAL PAIN [None]
  - TRICHIASIS [None]
  - MILK ALLERGY [None]
  - BONE PAIN [None]
  - ORAL PAIN [None]
  - WEIGHT DECREASED [None]
  - PAIN IN JAW [None]
  - HERNIA [None]
  - ORAL MUCOSAL ERYTHEMA [None]
  - EYE PAIN [None]
  - MALAISE [None]
  - TOOTHACHE [None]
  - BACK PAIN [None]
